FAERS Safety Report 9566848 (Version 1)
Quarter: 2013Q3

REPORT INFORMATION
  Report Type: Spontaneous
  Country: US (occurrence: US)
  Receive Date: 20130930
  Receipt Date: 20130930
  Transmission Date: 20140515
  Serious: No
  Sender: FDA-Public Use
  Company Number: US-AMGEN-USASP2012069524

PATIENT
  Sex: Female
  Weight: 86.17 kg

DRUGS (6)
  1. ENBREL [Suspect]
     Indication: PSORIASIS
     Dosage: 50 MG, QWK
     Route: 058
  2. OMEPRAZOLE [Concomitant]
     Dosage: 40 MG, UNK
  3. CITALOPRAM [Concomitant]
     Dosage: 10 MG, UNK
  4. TROSPIUM CHLORIDE [Concomitant]
     Dosage: 20 MG, UNK
  5. HYDROCODONE BITARTRATE AND ACETAMINOPHEN [Concomitant]
     Dosage: 5-500 MG, UNK
  6. DERMA-SMOOTHE [Concomitant]
     Dosage: UNK

REACTIONS (5)
  - Pain in extremity [Unknown]
  - Skin tightness [Unknown]
  - Skin fissures [Unknown]
  - Cough [Unknown]
  - Sinusitis [Unknown]
